FAERS Safety Report 11228556 (Version 2)
Quarter: 2015Q3

REPORT INFORMATION
  Report Type: Spontaneous
  Country: US (occurrence: CA)
  Receive Date: 20150630
  Receipt Date: 20150706
  Transmission Date: 20151125
  Serious: Yes (Hospitalization, Other)
  Sender: FDA-Public Use
  Company Number: CA-MYLANLABS-2015M1021624

PATIENT

DRUGS (12)
  1. SULFASALAZINE. [Suspect]
     Active Substance: SULFASALAZINE
     Dosage: 500 MG, BID
     Dates: start: 2007, end: 200804
  2. METHOTREXATE [Suspect]
     Active Substance: METHOTREXATE
     Dosage: 25 MG, QW
     Route: 058
     Dates: start: 201308
  3. METHOTREXATE [Suspect]
     Active Substance: METHOTREXATE
     Dosage: 25 MG, QW
     Route: 058
     Dates: start: 2006, end: 201010
  4. ACTEMRA [Suspect]
     Active Substance: TOCILIZUMAB
     Dosage: 800 MG, MONTHLY
     Route: 042
     Dates: start: 20110504, end: 20111129
  5. CORTISONE [Concomitant]
     Active Substance: CORTISONE\HYDROCORTISONE
     Dosage: UNK
     Dates: start: 201506
  6. RITUXAN [Suspect]
     Active Substance: RITUXIMAB
     Dosage: 1000 MG, EVERY 15 DAYS
     Dates: start: 20091222, end: 20100105
  7. HUMIRA [Suspect]
     Active Substance: ADALIMUMAB
     Dosage: 40 MG, BIWEEKLY
     Route: 058
     Dates: start: 200611
  8. RITUXAN [Suspect]
     Active Substance: RITUXIMAB
     Dosage: 1000 MG, EVERY 15 DAYS
     Route: 042
     Dates: start: 20090324, end: 20090407
  9. RITUXAN [Suspect]
     Active Substance: RITUXIMAB
     Dosage: 1000 MG, EVERY 15 DAYS
     Route: 042
     Dates: start: 20110111, end: 20110125
  10. PLAQUENIL [Suspect]
     Active Substance: HYDROXYCHLOROQUINE SULFATE
     Dosage: 400 MG, QD
     Dates: start: 2006, end: 2011
  11. REMICADE [Suspect]
     Active Substance: INFLIXIMAB
     Dosage: 5 MG/KG, UNK
     Dates: start: 200807, end: 20090128
  12. RITUXAN [Suspect]
     Active Substance: RITUXIMAB
     Dosage: 1000 MG, EVERY 15 DAYS
     Route: 042
     Dates: start: 20100628, end: 20100712

REACTIONS (6)
  - Abscess [Not Recovered/Not Resolved]
  - Type 2 diabetes mellitus [Not Recovered/Not Resolved]
  - Drug ineffective [Not Recovered/Not Resolved]
  - Bladder transitional cell carcinoma [Not Recovered/Not Resolved]
  - Arthritis bacterial [Not Recovered/Not Resolved]
  - Nausea [Not Recovered/Not Resolved]

NARRATIVE: CASE EVENT DATE: 2008
